FAERS Safety Report 4869607-1 (Version None)
Quarter: 2005Q4

REPORT INFORMATION
  Report Type: 
  Country: None (occurrence: None)
  Receive Date: 20051227
  Receipt Date: 20051206
  Transmission Date: 20060501
  Serious: Yes (Other)
  Sender: FDA-Public Use
  Company Number: 6019006

PATIENT
  Age: 63 Year
  Sex: Male

DRUGS (2)
  1. BISOPROLOL (TABLET) (BISOPROLOL) [Suspect]
     Indication: PALPITATIONS
     Dosage: 5,00 MG (5 MG, 1 IN 1 D)
     Route: 048
     Dates: start: 20010101
  2. ASPIRIN [Concomitant]

REACTIONS (2)
  - GAIT DISTURBANCE [None]
  - PERIPHERAL SENSORY NEUROPATHY [None]
